FAERS Safety Report 5569893-9 (Version None)
Quarter: 2007Q4

REPORT INFORMATION
  Report Type: 
  Country: None (occurrence: None)
  Receive Date: 20071220
  Receipt Date: 20071218
  Transmission Date: 20080405
  Serious: Yes (Death)
  Sender: FDA-Public Use
  Company Number: JP-GENENTECH-253057

PATIENT
  Age: 68 Year
  Sex: Male

DRUGS (1)
  1. GRTPA [Suspect]
     Indication: CEREBRAL INFARCTION
     Dosage: 0.6 MG/KG, UNK
     Route: 042
     Dates: start: 20070823

REACTIONS (1)
  - RESPIRATORY FAILURE [None]
